FAERS Safety Report 11215182 (Version 46)
Quarter: 2017Q4

REPORT INFORMATION
  Report Type: Report from Study
  Country: CA (occurrence: CA)
  Receive Date: 20150624
  Receipt Date: 20171011
  Transmission Date: 20180320
  Serious: Yes (Hospitalization, Other)
  Sender: FDA-Public Use
  Company Number: CA-ROCHE-1290787

PATIENT
  Age: 57 Year
  Sex: Female
  Weight: 57 kg

DRUGS (29)
  1. HERCEPTIN [Suspect]
     Active Substance: TRASTUZUMAB
     Route: 042
     Dates: start: 20141127
  2. AFINITOR [Suspect]
     Active Substance: EVEROLIMUS
     Dosage: DOSE DECREASED
     Route: 065
     Dates: start: 20160329
  3. KADCYLA [Suspect]
     Active Substance: ADO-TRASTUZUMAB EMTANSINE
     Route: 042
     Dates: start: 20140828, end: 20141106
  4. EXEMESTANE. [Suspect]
     Active Substance: EXEMESTANE
     Indication: PRODUCT USED FOR UNKNOWN INDICATION
     Route: 065
  5. KADCYLA [Suspect]
     Active Substance: ADO-TRASTUZUMAB EMTANSINE
     Indication: BREAST CANCER METASTATIC
     Route: 042
     Dates: start: 20131120
  6. CISPLATIN. [Concomitant]
     Active Substance: CISPLATIN
     Route: 065
     Dates: start: 2013
  7. HERCEPTIN [Suspect]
     Active Substance: TRASTUZUMAB
     Route: 042
     Dates: start: 20110914
  8. HERCEPTIN [Suspect]
     Active Substance: TRASTUZUMAB
     Route: 042
     Dates: start: 20111005
  9. OMEGA FATTY ACIDS [Concomitant]
     Active Substance: FISH OIL\OMEGA-3 FATTY ACIDS
  10. VITAMIN C [Concomitant]
     Active Substance: ASCORBIC ACID
  11. ASPIRIN. [Concomitant]
     Active Substance: ASPIRIN
  12. HERCEPTIN [Suspect]
     Active Substance: TRASTUZUMAB
     Route: 042
     Dates: start: 20130327
  13. AFINITOR [Suspect]
     Active Substance: EVEROLIMUS
     Indication: BREAST CANCER
     Route: 065
     Dates: end: 20160325
  14. AFINITOR [Suspect]
     Active Substance: EVEROLIMUS
     Dosage: DOSE INCREASED
     Route: 065
     Dates: start: 20150609
  15. TURMERIC [Concomitant]
     Active Substance: HERBALS\TURMERIC
  16. GINGER TEA [Concomitant]
  17. CRESTOR [Concomitant]
     Active Substance: ROSUVASTATIN CALCIUM
     Route: 065
  18. XELODA [Suspect]
     Active Substance: CAPECITABINE
     Indication: BREAST CANCER
     Route: 048
  19. GEMCITABINE [Concomitant]
     Active Substance: GEMCITABINE\GEMCITABINE HYDROCHLORIDE
     Route: 065
     Dates: start: 2011
  20. CIPRALEX [Concomitant]
     Active Substance: ESCITALOPRAM OXALATE
  21. ZOPICLONE [Concomitant]
     Active Substance: ZOPICLONE
  22. AMLODIPINE [Concomitant]
     Active Substance: AMLODIPINE BESYLATE
  23. ATIVAN [Concomitant]
     Active Substance: LORAZEPAM
  24. ZOMETA [Concomitant]
     Active Substance: ZOLEDRONIC ACID
  25. ZOLOFT [Concomitant]
     Active Substance: SERTRALINE HYDROCHLORIDE
  26. HERCEPTIN [Suspect]
     Active Substance: TRASTUZUMAB
     Indication: BREAST CANCER METASTATIC
     Route: 042
     Dates: start: 2007
  27. HERCEPTIN [Suspect]
     Active Substance: TRASTUZUMAB
     Route: 042
     Dates: start: 20161014
  28. MELATONIN [Concomitant]
     Active Substance: MELATONIN
  29. PAMIDRONATE [Concomitant]
     Active Substance: PAMIDRONATE DISODIUM

REACTIONS (52)
  - Blood pressure increased [Unknown]
  - Drug ineffective [Unknown]
  - Tumour marker abnormal [Recovering/Resolving]
  - Nasopharyngitis [Recovered/Resolved]
  - Blood pressure increased [Not Recovered/Not Resolved]
  - Back pain [Recovered/Resolved]
  - Nausea [Recovered/Resolved]
  - Inflammation [Unknown]
  - Psychotic disorder [Recovered/Resolved]
  - Anxiety [Not Recovered/Not Resolved]
  - Malignant neoplasm progression [Unknown]
  - Nasopharyngitis [Not Recovered/Not Resolved]
  - Pelvic neoplasm [Unknown]
  - Nervous system disorder [Unknown]
  - Neoplasm progression [Recovering/Resolving]
  - Diarrhoea [Recovered/Resolved]
  - Headache [Unknown]
  - Stress [Unknown]
  - Oral herpes [Recovered/Resolved]
  - Candida infection [Not Recovered/Not Resolved]
  - Tumour marker increased [Not Recovered/Not Resolved]
  - Myalgia [Unknown]
  - Hypertension [Unknown]
  - Infusion related reaction [Unknown]
  - Nasopharyngitis [Unknown]
  - Blood pressure increased [Unknown]
  - Complication associated with device [Unknown]
  - Nephrolithiasis [Unknown]
  - Contusion [Unknown]
  - Blood cholesterol increased [Not Recovered/Not Resolved]
  - Anxiety [Not Recovered/Not Resolved]
  - Hypersensitivity [Not Recovered/Not Resolved]
  - Vomiting [Recovered/Resolved]
  - Drug ineffective [Unknown]
  - Oral herpes [Not Recovered/Not Resolved]
  - Liver disorder [Unknown]
  - Bone neoplasm [Recovering/Resolving]
  - Nausea [Recovered/Resolved]
  - Weight decreased [Not Recovered/Not Resolved]
  - Tumour marker increased [Not Recovered/Not Resolved]
  - Ear pain [Recovered/Resolved]
  - Fatigue [Unknown]
  - Pain [Not Recovered/Not Resolved]
  - Emotional disorder [Not Recovered/Not Resolved]
  - Water intoxication [Recovered/Resolved]
  - Computerised tomogram abnormal [Not Recovered/Not Resolved]
  - Cough [Recovered/Resolved]
  - Metastases to spine [Unknown]
  - Abdominal pain [Not Recovered/Not Resolved]
  - Blood pressure increased [Not Recovered/Not Resolved]
  - Ocular hyperaemia [Not Recovered/Not Resolved]
  - Stomatitis [Recovered/Resolved]

NARRATIVE: CASE EVENT DATE: 2013
